FAERS Safety Report 17673509 (Version 1)
Quarter: 2020Q2

REPORT INFORMATION
  Report Type: Spontaneous
  Country: GB (occurrence: GB)
  Receive Date: 20200416
  Receipt Date: 20200416
  Transmission Date: 20200713
  Serious: Yes (Other)
  Sender: FDA-Public Use
  Company Number: GB-CHEPLA-C20201269

PATIENT
  Age: 9 Month
  Sex: Female

DRUGS (4)
  1. G-CSF [Concomitant]
     Active Substance: GRANULOCYTE COLONY-STIMULATING FACTOR NOS
     Indication: NEUTROPENIA
     Route: 065
  2. GANCICLOVIR. [Suspect]
     Active Substance: GANCICLOVIR
     Indication: CYTOMEGALOVIRUS VIRAEMIA
     Route: 065
  3. GANCICLOVIR. [Suspect]
     Active Substance: GANCICLOVIR
     Indication: PNEUMONIA CYTOMEGALOVIRAL
     Route: 065
  4. VALGANCICLOVIR. [Suspect]
     Active Substance: VALGANCICLOVIR
     Indication: PNEUMONIA CYTOMEGALOVIRAL
     Route: 065

REACTIONS (7)
  - Neutropenia [Recovered/Resolved]
  - Pneumonia cytomegaloviral [Recovered/Resolved]
  - Product use issue [Recovered/Resolved]
  - Rash maculo-papular [Recovered/Resolved]
  - Urinary tract infection [Recovered/Resolved]
  - Colitis [Recovered/Resolved]
  - Uveitis [Recovered/Resolved]
